FAERS Safety Report 5578599-1 (Version None)
Quarter: 2007Q4

REPORT INFORMATION
  Report Type: 
  Country: None (occurrence: None)
  Receive Date: 20071231
  Receipt Date: 20071226
  Transmission Date: 20080405
  Serious: Yes (Other)
  Sender: FDA-Public Use
  Company Number: PHBS2007JP21003

PATIENT
  Age: 26 Year
  Sex: Male

DRUGS (1)
  1. NEORAL [Suspect]
     Indication: PSORIATIC ARTHROPATHY
     Dosage: 300 MG/D
     Route: 048

REACTIONS (1)
  - HOMICIDE [None]
